FAERS Safety Report 9288074 (Version 1)
Quarter: 2013Q2

REPORT INFORMATION
  Report Type: Spontaneous
  Country: IT (occurrence: None)
  Receive Date: 20130509
  Receipt Date: 20130509
  Transmission Date: 20140414
  Serious: Yes (Hospitalization)
  Sender: FDA-Public Use
  Company Number: DAD201305-000511

PATIENT
  Age: 53 Year
  Sex: Female

DRUGS (5)
  1. RIBAVIRIN (RIBAVIRIN) [Suspect]
     Indication: HEPATITIS C
     Route: 048
     Dates: start: 20130211, end: 20130404
  2. PEGINTRON [Suspect]
     Indication: HEPATITIS C
     Dosage: 100 MCG WEEKLY
     Route: 058
     Dates: start: 20130211, end: 20130402
  3. INCIVO (TELAPREVIR) [Suspect]
     Indication: HEPATITIS C
     Route: 048
     Dates: start: 20130328, end: 20130404
  4. ANTRA [Concomitant]
  5. EUTIROX (LEVOTHYROXINE) [Concomitant]

REACTIONS (7)
  - Muscle spasms [None]
  - Hypotension [None]
  - Myalgia [None]
  - Hyperuricaemia [None]
  - Aphagia [None]
  - Fluid intake reduced [None]
  - Vomiting [None]
